FAERS Safety Report 5620492-X (Version None)
Quarter: 2008Q1

REPORT INFORMATION
  Report Type: 
  Country: None (occurrence: None)
  Receive Date: 20080208
  Receipt Date: 20080131
  Transmission Date: 20080703
  Serious: Yes (Hospitalization)
  Sender: FDA-Public Use
  Company Number: DE-ABBOTT-07P-062-0424021-00

PATIENT
  Sex: Male
  Weight: 89 kg

DRUGS (2)
  1. HUMIRA [Suspect]
     Indication: ANKYLOSING SPONDYLITIS
     Route: 058
     Dates: start: 20070717, end: 20070801
  2. PREDNISOLONE [Concomitant]
     Indication: ANKYLOSING SPONDYLITIS
     Route: 048

REACTIONS (3)
  - ABSCESS [None]
  - DENTAL CARIES [None]
  - ENTEROCUTANEOUS FISTULA [None]
